FAERS Safety Report 10653027 (Version 2)
Quarter: 2015Q2

REPORT INFORMATION
  Report Type: Spontaneous
  Country: US (occurrence: US)
  Receive Date: 20141215
  Receipt Date: 20150429
  Transmission Date: 20150821
  Serious: No
  Sender: FDA-Public Use
  Company Number: US-PFIZER INC-2014341522

PATIENT
  Age: 70 Year
  Sex: Male
  Weight: 82 kg

DRUGS (1)
  1. DEPO-TESTOSTERONE [Suspect]
     Active Substance: TESTOSTERONE CYPIONATE
     Indication: BLOOD TESTOSTERONE DECREASED
     Dosage: 1 ML, CYCLIC (EVERY 2 WEEKS)
     Dates: start: 2011

REACTIONS (8)
  - Pain in extremity [Recovered/Resolved]
  - Drug administered at inappropriate site [Unknown]
  - Arthralgia [Recovered/Resolved]
  - Lower extremity mass [Recovered/Resolved]
  - Back pain [Recovered/Resolved]
  - Injection site mass [Recovered/Resolved]
  - Gait disturbance [Recovered/Resolved]
  - Product deposit [Recovered/Resolved]

NARRATIVE: CASE EVENT DATE: 201411
